FAERS Safety Report 8448126-X (Version None)
Quarter: 2012Q2

REPORT INFORMATION
  Report Type: 
  Country: None (occurrence: None)
  Receive Date: 20120619
  Receipt Date: 20120615
  Transmission Date: 20120825
  Serious: No
  Sender: FDA-Public Use
  Company Number: US-TEVA-343616USA

PATIENT
  Sex: Female
  Weight: 81.72 kg

DRUGS (2)
  1. PLAN B ONE-STEP [Suspect]
     Indication: POST COITAL CONTRACEPTION
     Dosage: 1.5 MILLIGRAM;
     Route: 048
     Dates: start: 20120612, end: 20120612
  2. YAZ [Concomitant]
     Indication: CONTRACEPTION

REACTIONS (6)
  - FATIGUE [None]
  - FEELING HOT [None]
  - DIARRHOEA [None]
  - MENSTRUATION IRREGULAR [None]
  - OFF LABEL USE [None]
  - NAUSEA [None]
